FAERS Safety Report 6550996-7 (Version None)
Quarter: 2010Q1

REPORT INFORMATION
  Report Type: 
  Country: None (occurrence: None)
  Receive Date: 20100122
  Receipt Date: 20100122
  Transmission Date: 20100710
  Serious: No
  Sender: FDA-Public Use
  Company Number: None

PATIENT
  Age: 55 Year
  Sex: Male
  Weight: 108.4 kg

DRUGS (1)
  1. ASPIRIN [Suspect]
     Indication: HYPERTENSION
     Dosage: 325 MG EVERY DAY PO
     Route: 048
     Dates: start: 20071205, end: 20090626

REACTIONS (1)
  - ANGIOEDEMA [None]
